FAERS Safety Report 7225266-4 (Version None)
Quarter: 2011Q1

REPORT INFORMATION
  Report Type: 
  Country: None (occurrence: None)
  Receive Date: 20110113
  Receipt Date: 20110104
  Transmission Date: 20110831
  Serious: Yes (Death)
  Sender: FDA-Public Use
  Company Number: B0692800A

PATIENT
  Age: 23 Year
  Sex: Female

DRUGS (6)
  1. VERAPAMIL [Suspect]
     Route: 065
  2. NO-SPA [Suspect]
     Route: 065
  3. PARACETAMOL [Suspect]
     Dosage: 500MG SINGLE DOSE
     Route: 048
  4. BETAMETHASONE [Suspect]
     Indication: PRENATAL CARE
     Dosage: 24MG CUMULATIVE DOSE
     Route: 065
  5. AUGMENTIN '125' [Suspect]
     Route: 042
  6. SCOPOLAN [Suspect]
     Route: 065

REACTIONS (11)
  - CONDITION AGGRAVATED [None]
  - DYSARTHRIA [None]
  - PULMONARY OEDEMA [None]
  - DRUG EXPOSURE DURING PREGNANCY [None]
  - RESPIRATORY FAILURE [None]
  - LIVE BIRTH [None]
  - HEART RATE INCREASED [None]
  - UROSEPSIS [None]
  - BODY TEMPERATURE INCREASED [None]
  - CARDIOVASCULAR INSUFFICIENCY [None]
  - ESCHERICHIA INFECTION [None]
